FAERS Safety Report 10250110 (Version 1)
Quarter: 2014Q2

REPORT INFORMATION
  Report Type: Spontaneous
  Country: US (occurrence: US)
  Receive Date: 20140620
  Receipt Date: 20140620
  Transmission Date: 20141212
  Serious: No
  Sender: FDA-Public Use
  Company Number: US-BRISTOL-MYERS SQUIBB COMPANY-20670030

PATIENT
  Age: 71 Year
  Sex: Female
  Weight: 61.22 kg

DRUGS (1)
  1. ELIQUIS [Suspect]
     Indication: ATRIAL FIBRILLATION
     Dates: end: 20140414

REACTIONS (5)
  - Headache [Unknown]
  - Nausea [Unknown]
  - Rash [Unknown]
  - Asthenia [Recovering/Resolving]
  - Epistaxis [Unknown]
